FAERS Safety Report 4640158-2 (Version None)
Quarter: 2005Q2

REPORT INFORMATION
  Report Type: 
  Country: None (occurrence: None)
  Receive Date: 20050419
  Receipt Date: 20050405
  Transmission Date: 20051028
  Serious: Yes (Hospitalization)
  Sender: FDA-Public Use
  Company Number: TPA2005A00090

PATIENT
  Age: 57 Year
  Sex: Male
  Weight: 77.1115 kg

DRUGS (8)
  1. ACTOS [Suspect]
     Indication: DIABETES MELLITUS
     Dosage: 45 MG 1 IN 1 D, PER ORAL
     Route: 048
     Dates: start: 20030901
  2. ADVICOR (ADVICOR - SLOW RELEASE) [Concomitant]
  3. NEURONTIN [Concomitant]
  4. LOTREL [Concomitant]
  5. COUMADIN [Concomitant]
  6. VALIUM [Concomitant]
  7. DILANTIN [Concomitant]
  8. LORTAB [Concomitant]

REACTIONS (1)
  - PNEUMONIA [None]
